FAERS Safety Report 7920417-8 (Version None)
Quarter: 2011Q4

REPORT INFORMATION
  Report Type: 
  Country: None (occurrence: None)
  Receive Date: 20111117
  Receipt Date: 20111107
  Transmission Date: 20120403
  Serious: Yes (Other)
  Sender: FDA-Public Use
  Company Number: PHEH2011US03446

PATIENT
  Sex: Female

DRUGS (2)
  1. METFORMIN HCL [Concomitant]
     Dosage: UNK UKN, UNK
  2. EXFORGE [Suspect]
     Dosage: UNK UKN, UNK

REACTIONS (4)
  - HAND FRACTURE [None]
  - FALL [None]
  - OEDEMA PERIPHERAL [None]
  - LIGAMENT INJURY [None]
